FAERS Safety Report 10057428 (Version 3)
Quarter: 2014Q2

REPORT INFORMATION
  Report Type: Spontaneous
  Country: BR (occurrence: BR)
  Receive Date: 20140403
  Receipt Date: 20140526
  Transmission Date: 20141212
  Serious: Yes (Other)
  Sender: FDA-Public Use
  Company Number: PHHY2014BR039050

PATIENT
  Sex: Female
  Weight: 80 kg

DRUGS (6)
  1. TRILEPTAL [Suspect]
     Indication: PETIT MAL EPILEPSY
     Dosage: 3 DF, TID
  2. TRILEPTAL [Suspect]
     Indication: OFF LABEL USE
     Dosage: 600 MG, 3 TABLETS DAILY
     Route: 048
     Dates: start: 2008
  3. TRILEPTAL [Suspect]
     Dosage: 300 MG, 6 TABLETS, DAILY
     Route: 048
  4. LAMOTRIGINE [Suspect]
     Indication: PETIT MAL EPILEPSY
     Dosage: 2 DF, DAILY (100MG)
     Route: 048
     Dates: start: 2013
  5. LAMOTRIGINE [Suspect]
     Dosage: 50 MG TABLETS
     Dates: start: 201309
  6. LAMOTRIGINE [Suspect]
     Dosage: 10 MG, TID

REACTIONS (7)
  - Ankle fracture [Recovered/Resolved]
  - Fall [Recovered/Resolved]
  - Cerebral atrophy [Not Recovered/Not Resolved]
  - Petit mal epilepsy [Not Recovered/Not Resolved]
  - Memory impairment [Not Recovered/Not Resolved]
  - Bronchitis [Recovered/Resolved]
  - Cough [Not Recovered/Not Resolved]
